FAERS Safety Report 4485370-0 (Version None)
Quarter: 2004Q4

REPORT INFORMATION
  Report Type: 
  Country: None (occurrence: None)
  Receive Date: 20041025
  Receipt Date: 20041025
  Transmission Date: 20050328
  Serious: Yes (Hospitalization)
  Sender: FDA-Public Use
  Company Number: None

PATIENT
  Age: 52 Year
  Sex: Male
  Weight: 79.09 kg

DRUGS (6)
  1. SERTRALINE HCL [Suspect]
     Indication: DEPRESSION
     Dosage: 50 MG QD ORAL
     Route: 048
     Dates: start: 20040302, end: 20041022
  2. METOPROLOL SUCCINATE [Concomitant]
  3. NICOTINE [Concomitant]
  4. RANITIDINE [Concomitant]
  5. NITROGLYCERIN [Concomitant]
  6. TRIHEXYPHENIDYL HCL [Concomitant]

REACTIONS (7)
  - DROOLING [None]
  - DYSKINESIA [None]
  - DYSPNOEA [None]
  - DYSTONIA [None]
  - EYE ROLLING [None]
  - MUSCULOSKELETAL STIFFNESS [None]
  - SWOLLEN TONGUE [None]
